FAERS Safety Report 8140760-X (Version None)
Quarter: 2012Q1

REPORT INFORMATION
  Report Type: 
  Country: None (occurrence: None)
  Receive Date: 20120216
  Receipt Date: 20120206
  Transmission Date: 20120608
  Serious: Yes (Hospitalization)
  Sender: FDA-Public Use
  Company Number: BR-SANOFI-AVENTIS-2012SA007954

PATIENT
  Age: 55 Year
  Sex: Male
  Weight: 74 kg

DRUGS (10)
  1. APIDRA [Suspect]
     Dosage: DOSE: ACCORDING TO GLYCEMIA
     Route: 058
  2. ENALAPRIL [Concomitant]
     Indication: RENAL DISORDER
     Dosage: STRENGTH:5MG
     Route: 048
     Dates: end: 20111101
  3. APIDRA [Suspect]
     Dosage: APIDRA / CARTRIDGE/ 3ML
     Route: 058
     Dates: start: 20100101
  4. LANTUS [Suspect]
     Dosage: LANTUS/ VIAL
     Route: 058
     Dates: start: 20100101
  5. ASPIRIN [Concomitant]
     Indication: ANTICOAGULANT THERAPY
     Dosage: STRENGTH:100MG
     Route: 048
     Dates: start: 20100101
  6. SIMVASTATIN [Concomitant]
     Route: 048
     Dates: start: 20100101, end: 20110101
  7. SYNTHROID [Concomitant]
     Indication: THYROID DISORDER
     Dosage: STRENGTH:125MCG
     Route: 048
     Dates: start: 20100101
  8. AUTOPEN 24 [Suspect]
     Indication: DEVICE THERAPY
     Dates: start: 20100101
  9. AMLODIPINE [Concomitant]
     Indication: RENAL DISORDER
     Dosage: STRENGTH:5MG
     Route: 048
     Dates: start: 20100101
  10. ALISKIREN [Concomitant]
     Indication: RENAL DISORDER
     Dosage: STRENGTH:150MG
     Route: 048
     Dates: start: 20110101, end: 20111101

REACTIONS (5)
  - FATIGUE [None]
  - HYPERGLYCAEMIA [None]
  - HYPOGLYCAEMIA [None]
  - TACHYCARDIA [None]
  - EXPIRED DRUG ADMINISTERED [None]
